FAERS Safety Report 8558920-2 (Version None)
Quarter: 2012Q3

REPORT INFORMATION
  Report Type: 
  Country: None (occurrence: None)
  Receive Date: 20120802
  Receipt Date: 20120730
  Transmission Date: 20120928
  Serious: Yes (Other)
  Sender: FDA-Public Use
  Company Number: US-AMGEN-USASP2011042118

PATIENT
  Age: 51 Year
  Sex: Male
  Weight: 160.54 kg

DRUGS (5)
  1. NPLATE [Suspect]
     Indication: IDIOPATHIC THROMBOCYTOPENIC PURPURA
     Dosage: 1 MUG/KG, UNK
     Route: 058
     Dates: start: 20101215, end: 20110105
  2. AUGMENTIN '125' [Concomitant]
     Indication: INFECTION
     Dosage: 875 MG, QD
     Route: 048
     Dates: start: 20101118, end: 20101202
  3. LASIX [Concomitant]
     Indication: OEDEMA
     Dosage: 40 MG, UNK
     Route: 048
     Dates: start: 20101026
  4. IMMUNE GLOBULIN NOS [Concomitant]
     Indication: IDIOPATHIC THROMBOCYTOPENIC PURPURA
  5. AMBIEN [Concomitant]
     Indication: INSOMNIA
     Dosage: 10 MG, UNK
     Route: 048
     Dates: start: 20101026

REACTIONS (1)
  - THERAPEUTIC RESPONSE DECREASED [None]
